FAERS Safety Report 6638305-6 (Version None)
Quarter: 2010Q1

REPORT INFORMATION
  Report Type: 
  Country: None (occurrence: None)
  Receive Date: 20100317
  Receipt Date: 20100309
  Transmission Date: 20100710
  Serious: Yes (Other)
  Sender: FDA-Public Use
  Company Number: US-ASTRAZENECA-2010SE10438

PATIENT
  Age: 435 Month
  Sex: Female
  Weight: 127 kg

DRUGS (2)
  1. SEROQUEL XR [Suspect]
     Indication: BIPOLAR DISORDER
     Route: 048
     Dates: start: 20080301
  2. ASPIRIN [Concomitant]

REACTIONS (1)
  - PANCREATITIS [None]
